FAERS Safety Report 8059087-X (Version None)
Quarter: 2012Q1

REPORT INFORMATION
  Report Type: 
  Country: None (occurrence: None)
  Receive Date: 20120120
  Receipt Date: 20111108
  Transmission Date: 20120608
  Serious: No
  Sender: FDA-Public Use
  Company Number: US-BAUSCH-2011BL007789

PATIENT
  Age: 43 Year
  Sex: Female

DRUGS (1)
  1. ALAWAY [Suspect]
     Indication: SKIN TEST
     Route: 065
     Dates: start: 20111108, end: 20111108

REACTIONS (1)
  - SKIN TEST POSITIVE [None]
